FAERS Safety Report 8508950-1 (Version None)
Quarter: 2012Q3

REPORT INFORMATION
  Report Type: 
  Country: None (occurrence: None)
  Receive Date: 20120703
  Receipt Date: 20120622
  Transmission Date: 20120928
  Serious: Yes (Death, Hospitalization)
  Sender: FDA-Public Use
  Company Number: IPC201206-000296

PATIENT
  Age: 16 Year
  Sex: Female

DRUGS (2)
  1. CHLOROQUINE PHOSPHATE [Suspect]
     Indication: MALARIA
  2. ANILINE [Suspect]

REACTIONS (17)
  - CYANOSIS [None]
  - CEREBRAL ISCHAEMIA [None]
  - METHAEMOGLOBINAEMIA [None]
  - HEADACHE [None]
  - HEART RATE INCREASED [None]
  - RESPIRATORY RATE INCREASED [None]
  - SPLEEN PALPABLE [None]
  - BLOOD PRESSURE DECREASED [None]
  - PUPIL FIXED [None]
  - LOSS OF CONSCIOUSNESS [None]
  - HEPATOMEGALY [None]
  - ENCEPHALOPATHY [None]
  - PYREXIA [None]
  - SKIN DISCOLOURATION [None]
  - PULSE PRESSURE DECREASED [None]
  - OXYGEN SATURATION DECREASED [None]
  - ANAEMIA [None]
